FAERS Safety Report 7938993-8 (Version None)
Quarter: 2011Q4

REPORT INFORMATION
  Report Type: 
  Country: None (occurrence: None)
  Receive Date: 20111124
  Receipt Date: 20111122
  Transmission Date: 20120403
  Serious: No
  Sender: FDA-Public Use
  Company Number: US-PFIZER INC-2011286883

PATIENT
  Sex: Female
  Weight: 65.76 kg

DRUGS (6)
  1. PAXIL [Concomitant]
     Indication: ANXIETY
     Dosage: UNK, AS NEEDED
  2. LORTAB [Concomitant]
     Indication: DEPRESSION
  3. CHANTIX [Suspect]
     Indication: SMOKING CESSATION THERAPY
     Dosage: 0.5 MG, DAILY
     Route: 048
     Dates: start: 20110101
  4. TRAZODONE [Concomitant]
     Indication: SLEEP DISORDER
     Dosage: UNK, AS NEEDED
  5. PAXIL [Concomitant]
     Indication: DEPRESSION
  6. LORTAB [Concomitant]
     Indication: ANXIETY
     Dosage: 1 MG, AS NEEDED

REACTIONS (4)
  - MYALGIA [None]
  - BACK PAIN [None]
  - ARTHRALGIA [None]
  - HEADACHE [None]
